FAERS Safety Report 13940345 (Version 1)
Quarter: 2017Q3

REPORT INFORMATION
  Report Type: Report from Study
  Country: US (occurrence: US)
  Receive Date: 20170906
  Receipt Date: 20170906
  Transmission Date: 20171127
  Serious: Yes (Death)
  Sender: FDA-Public Use
  Company Number: US-ROCHE-1989868

PATIENT
  Age: 69 Year
  Sex: Male

DRUGS (3)
  1. HEPARIN [Concomitant]
     Active Substance: HEPARIN SODIUM
     Indication: ACUTE MYOCARDIAL INFARCTION
     Dosage: INITIAL 5,000 UNIT BOLUS GIVEN AT THE INITIATION OF THE RT-PA INFUSION
     Route: 040
  2. ALTEPLASE. [Suspect]
     Active Substance: ALTEPLASE
     Indication: ACUTE MYOCARDIAL INFARCTION
     Dosage: 6 HOUR INFUSION
     Route: 042
  3. HEPARIN [Concomitant]
     Active Substance: HEPARIN SODIUM
     Dosage: 1,000 UNITS/HOUR WAS BEGUN 1 HOUR AFTER AN INITIAL 5,000 UNIT BOLUS
     Route: 042

REACTIONS (1)
  - Cerebral haematoma [Fatal]
